FAERS Safety Report 23778170 (Version 2)
Quarter: 2025Q4

REPORT INFORMATION
  Report Type: Spontaneous
  Country: JP (occurrence: JP)
  Receive Date: 20240424
  Receipt Date: 20251204
  Transmission Date: 20260118
  Serious: Yes (Hospitalization)
  Sender: BAYER HEALTHCARE PHARMACEUTICALS INC.
  Company Number: JP-BAYER-2024A048259

PATIENT
  Age: 82 Year
  Sex: Male
  Weight: 46.3 kg

DRUGS (2)
  1. XOFIGO [Suspect]
     Active Substance: RADIUM RA-223 DICHLORIDE
     Indication: Hormone-refractory prostate cancer
     Dosage: UNK
     Dates: start: 20231026, end: 20240314
  2. LEUPROLIDE ACETATE [Concomitant]
     Active Substance: LEUPROLIDE ACETATE
     Indication: Neoplasm malignant
     Dosage: UNK
     Dates: start: 202001

REACTIONS (2)
  - Fall [Recovered/Resolved]
  - Traumatic fracture [Recovered/Resolved]

NARRATIVE: CASE EVENT DATE: 20240326
